FAERS Safety Report 11249637 (Version 1)
Quarter: 2015Q3

REPORT INFORMATION
  Report Type: Spontaneous
  Country: US (occurrence: US)
  Receive Date: 20150708
  Receipt Date: 20150708
  Transmission Date: 20151125
  Serious: No
  Sender: FDA-Public Use
  Company Number: US-ELI_LILLY_AND_COMPANY-US200908000590

PATIENT
  Age: 60 Year
  Sex: Female

DRUGS (2)
  1. GEMZAR [Suspect]
     Active Substance: GEMCITABINE HYDROCHLORIDE
     Indication: GALLBLADDER CANCER STAGE IV
     Route: 042
     Dates: end: 200903
  2. OXALIPLATIN. [Concomitant]
     Active Substance: OXALIPLATIN
     Indication: GALLBLADDER CANCER STAGE IV

REACTIONS (5)
  - Weight increased [Unknown]
  - Fatigue [Unknown]
  - Tooth abscess [Unknown]
  - Neuropathy peripheral [Unknown]
  - Arthritis [Unknown]
